FAERS Safety Report 4703877-5 (Version None)
Quarter: 2005Q2

REPORT INFORMATION
  Report Type: 
  Country: None (occurrence: None)
  Receive Date: 20050628
  Receipt Date: 20050616
  Transmission Date: 20051028
  Serious: Yes (Other)
  Sender: FDA-Public Use
  Company Number: 2005089733

PATIENT
  Sex: Male
  Weight: 92.9874 kg

DRUGS (2)
  1. LIPITOR [Suspect]
     Indication: BLOOD CHOLESTEROL INCREASED
     Dosage: 20 MG (20 MG, 1 IN 1 D), ORAL
     Route: 048
  2. CRESTOR [Suspect]
     Indication: BLOOD CHOLESTEROL INCREASED
     Dosage: 10 MG (10 MG, 1 IN 1 D), ORAL
     Route: 048
     Dates: start: 20040101, end: 20041001

REACTIONS (9)
  - DRUG INEFFECTIVE [None]
  - EYE DISORDER [None]
  - FLATULENCE [None]
  - GLAUCOMA [None]
  - INCORRECT DOSE ADMINISTERED [None]
  - LIPIDS ABNORMAL [None]
  - MUSCLE SPASMS [None]
  - VENTRICULAR EXTRASYSTOLES [None]
  - VISUAL FIELD DEFECT [None]
